FAERS Safety Report 4904719-5 (Version None)
Quarter: 2006Q1

REPORT INFORMATION
  Report Type: 
  Country: None (occurrence: None)
  Receive Date: 20060208
  Receipt Date: 20050519
  Transmission Date: 20060701
  Serious: Yes (Death, Life-Threatening, Hospitalization)
  Sender: FDA-Public Use
  Company Number: DE-ROCHE-405361

PATIENT
  Age: 48 Year
  Sex: Male

DRUGS (3)
  1. PEGASYS [Suspect]
     Indication: HEPATITIS C
     Route: 058
     Dates: start: 20041220, end: 20050414
  2. COPEGUS [Suspect]
     Indication: HEPATITIS C
     Route: 048
     Dates: start: 20041220, end: 20050414
  3. DECORTIN [Concomitant]
     Route: 048
     Dates: start: 20040615

REACTIONS (7)
  - AUTOIMMUNE THROMBOCYTOPENIA [None]
  - GENERAL PHYSICAL CONDITION ABNORMAL [None]
  - HEPATIC FAILURE [None]
  - ILEUS [None]
  - ILEUS PARALYTIC [None]
  - PLATELET COUNT DECREASED [None]
  - UPPER GASTROINTESTINAL HAEMORRHAGE [None]
